FAERS Safety Report 8551891 (Version 3)
Quarter: 2013Q1

REPORT INFORMATION
  Report Type: Report from Study
  Country: DE (occurrence: DE)
  Receive Date: 20120508
  Receipt Date: 20130313
  Transmission Date: 20140127
  Serious: Yes (Hospitalization)
  Sender: FDA-Public Use
  Company Number: DE-ROCHE-1066354

PATIENT
  Sex: Female
  Weight: 66 kg

DRUGS (5)
  1. PEG-INTERFERON ALFA 2A [Suspect]
     Indication: CHRONIC HEPATITIS C
     Route: 058
     Dates: start: 20110705, end: 20111122
  2. RIBAVIRIN [Suspect]
     Indication: CHRONIC HEPATITIS C
     Route: 048
     Dates: start: 20110705, end: 20111122
  3. ZOLPIDEM [Concomitant]
     Route: 065
     Dates: start: 20110817, end: 20110930
  4. MICTONORM [Concomitant]
     Route: 065
     Dates: start: 20111102, end: 20111117
  5. ALISPORIVIR [Suspect]
     Indication: CHRONIC HEPATITIS C
     Route: 048
     Dates: start: 20110705, end: 20111122

REACTIONS (1)
  - Disorientation [Recovered/Resolved]
